FAERS Safety Report 9145694 (Version 2)
Quarter: 2013Q2

REPORT INFORMATION
  Report Type: Report from Study
  Country: HU (occurrence: HU)
  Receive Date: 20130307
  Receipt Date: 20130411
  Transmission Date: 20140414
  Serious: Yes (Hospitalization)
  Sender: FDA-Public Use
  Company Number: HU-BRISTOL-MYERS SQUIBB COMPANY-17423252

PATIENT
  Age: 63 Year
  Sex: Male
  Weight: 68 kg

DRUGS (20)
  1. CARBOPLATIN [Suspect]
     Indication: NON-SMALL CELL LUNG CANCER
     Dosage: 1 DF: AUC 6?ON DAY3 OF EACH 21 DAY CYCLE
     Route: 042
     Dates: start: 20120830, end: 20121108
  2. PACLITAXEL [Suspect]
     Indication: NON-SMALL CELL LUNG CANCER
     Dosage: D3 OF EVERY 21D CYCLE
     Route: 042
     Dates: start: 20120830, end: 20121108
  3. LOKREN [Concomitant]
     Indication: HYPERTENSION
  4. IRBESARTAN + HCTZ [Concomitant]
     Indication: HYPERTENSION
     Dosage: 12.5/300 MG
     Dates: start: 2010
  5. ASPIRIN PROTECT [Concomitant]
     Indication: VASCULAR ENCEPHALOPATHY
     Dates: start: 20111117
  6. NIFLUMIC ACID [Concomitant]
     Indication: CHEST PAIN
     Dosage: DF: CAPS
     Dates: start: 20120112, end: 20121114
  7. LORATADINE [Concomitant]
     Indication: PREMEDICATION
     Dates: start: 20120830
  8. ONDANSETRON [Concomitant]
     Indication: PREMEDICATION
     Dates: start: 20120830
  9. METHYLPREDNISOLONE [Concomitant]
     Indication: PREMEDICATION
     Dates: start: 20120830
  10. FAMOTIDINE [Concomitant]
     Indication: PREMEDICATION
     Dates: start: 20120830
  11. TRAMADOL [Concomitant]
     Indication: CHEST PAIN
     Dates: start: 20120901
  12. CAPTOPRIL [Concomitant]
     Indication: HYPERTENSION
     Dates: start: 20120918, end: 20120920
  13. FERROUS SULFATE + FOLIC ACID [Concomitant]
     Indication: ANAEMIA
     Dosage: DF: TABS
     Dates: start: 20121106
  14. MILGAMMA [Concomitant]
     Indication: NEUROPATHY PERIPHERAL
     Dosage: DF: TABS
     Dates: start: 20121106
  15. ACECLOFENAC [Concomitant]
     Indication: CHEST PAIN
     Dates: start: 20121115
  16. ALPRAZOLAM [Concomitant]
     Indication: NEUROPATHY PERIPHERAL
     Dates: start: 20121115
  17. SUCRALFATE [Concomitant]
     Indication: PROPHYLAXIS
     Dates: start: 20121115
  18. FILGRASTIM [Concomitant]
     Indication: NEUTROPENIA
     Dates: start: 20121115, end: 20121118
  19. EPOETIN ALFA [Concomitant]
     Indication: ANAEMIA
     Dosage: DF: INJECTION
     Dates: start: 20121115
  20. MEDROL [Concomitant]
     Indication: NEUTROPENIA
     Dates: start: 20121025, end: 20121106

REACTIONS (1)
  - Ischaemic stroke [Recovered/Resolved]
